FAERS Safety Report 7470826-9 (Version None)
Quarter: 2011Q2

REPORT INFORMATION
  Report Type: 
  Country: None (occurrence: None)
  Receive Date: 20110510
  Receipt Date: 20110401
  Transmission Date: 20111010
  Serious: No
  Sender: FDA-Public Use
  Company Number: US-BAYER-2011-029721

PATIENT
  Sex: Female
  Weight: 52 kg

DRUGS (4)
  1. ALEVE (CAPLET) [Suspect]
     Indication: BACK PAIN
     Dosage: 1 DF, ONCE
     Route: 048
     Dates: start: 20110401, end: 20110401
  2. ENALAPRIL [Concomitant]
  3. PRAVASTATIN [Concomitant]
  4. FLINTSTONES GUMMIES [Concomitant]

REACTIONS (2)
  - DIZZINESS [None]
  - NAUSEA [None]
